FAERS Safety Report 10625836 (Version 1)
Quarter: 2014Q4

REPORT INFORMATION
  Report Type: Spontaneous
  Country: FR (occurrence: FR)
  Receive Date: 20141204
  Receipt Date: 20141204
  Transmission Date: 20150529
  Serious: Yes (Hospitalization)
  Sender: FDA-Public Use
  Company Number: ALCN2014FR006710

PATIENT
  Age: 79 Year
  Sex: Female

DRUGS (8)
  1. ACTONEL [Suspect]
     Active Substance: RISEDRONATE SODIUM
     Dosage: UNK
  2. DETENSIEL [Suspect]
     Active Substance: BISOPROLOL FUMARATE
     Dosage: UNK
     Route: 048
  3. CRESTOR [Suspect]
     Active Substance: ROSUVASTATIN CALCIUM
     Dosage: UNK
     Route: 048
  4. CONDROSULF [Suspect]
     Active Substance: CHONDROITIN SULFATE (CHICKEN)
     Dosage: UNK
     Route: 048
  5. ALOMIDE [Suspect]
     Active Substance: LODOXAMIDE TROMETHAMINE
     Dosage: UNK
     Route: 047
     Dates: start: 2012
  6. SULFARLEM [Suspect]
     Active Substance: ANETHOLTRITHION
     Dosage: UNK
     Route: 048
  7. SYMBICORT [Suspect]
     Active Substance: BUDESONIDE\FORMOTEROL FUMARATE DIHYDRATE
     Dosage: UNK
  8. DAFLON                             /01026201/ [Suspect]
     Active Substance: DIOSMIN\HESPERIDIN
     Dosage: UNK

REACTIONS (1)
  - Eczema [Unknown]
